FAERS Safety Report 24162414 (Version 2)
Quarter: 2024Q3

REPORT INFORMATION
  Report Type: Spontaneous
  Country: DE (occurrence: DE)
  Receive Date: 20240801
  Receipt Date: 20240829
  Transmission Date: 20241016
  Serious: No
  Sender: PFIZER
  Company Number: DE-PFIZER INC-202400219358

PATIENT
  Sex: Female

DRUGS (1)
  1. DALTEPARIN SODIUM [Suspect]
     Active Substance: DALTEPARIN SODIUM
     Dosage: 5000 IU FOR 5 WEEKS

REACTIONS (1)
  - Needle issue [Unknown]
